FAERS Safety Report 19249926 (Version 1)
Quarter: 2021Q2

REPORT INFORMATION
  Report Type: Report from Study
  Country: US (occurrence: US)
  Receive Date: 20210513
  Receipt Date: 20210513
  Transmission Date: 20210717
  Serious: No
  Sender: FDA-Public Use
  Company Number: US-ACADIA PHARMACEUTICALS INC.-ACA-2021-PIM-001505

PATIENT
  Age: 77 Year
  Sex: Female
  Weight: 60 kg

DRUGS (12)
  1. NUPLAZID [Suspect]
     Active Substance: PIMAVANSERIN TARTRATE
     Indication: DELUSION
     Dosage: UNK
     Route: 065
     Dates: start: 20210419
  2. NAMENDA [Concomitant]
     Active Substance: MEMANTINE HYDROCHLORIDE
     Dosage: FOUR A DAY
  3. ATORVASTATIN [Concomitant]
     Active Substance: ATORVASTATIN
  4. NUPLAZID [Suspect]
     Active Substance: PIMAVANSERIN TARTRATE
     Indication: HALLUCINATION
     Dosage: UNK
     Route: 065
     Dates: start: 20210417
  5. CALCIUM [Concomitant]
     Active Substance: CALCIUM
     Dosage: QAM
  6. DONEPEZIL. [Concomitant]
     Active Substance: DONEPEZIL
  7. MELATONIN [Concomitant]
     Active Substance: MELATONIN
  8. NUPLAZID [Suspect]
     Active Substance: PIMAVANSERIN TARTRATE
     Indication: PARKINSON^S DISEASE PSYCHOSIS
  9. QUETIAPINE. [Concomitant]
     Active Substance: QUETIAPINE
  10. LOSARTAN. [Concomitant]
     Active Substance: LOSARTAN
  11. VITAMIN B12 FORTE [Concomitant]
  12. ASA [Concomitant]
     Active Substance: ASPIRIN

REACTIONS (2)
  - Product dose omission issue [Recovered/Resolved]
  - Hypersomnia [Not Recovered/Not Resolved]

NARRATIVE: CASE EVENT DATE: 202104
